FAERS Safety Report 7137087-1 (Version None)
Quarter: 2010Q4

REPORT INFORMATION
  Report Type: 
  Country: None (occurrence: None)
  Receive Date: 20101206
  Receipt Date: 20071210
  Transmission Date: 20110411
  Serious: Yes (Death)
  Sender: FDA-Public Use
  Company Number: US-ACTELION-A-US2005-15273

PATIENT

DRUGS (8)
  1. ILOPROST INHALATION SOLUTION 5UG US [Suspect]
     Indication: PULMONARY ARTERIAL HYPERTENSION
     Dosage: 5 UG, 6 X DAY
     Route: 055
     Dates: start: 20050518
  2. TRACLEER [Concomitant]
     Indication: PULMONARY HYPERTENSION
  3. METFORMIN HCL [Concomitant]
  4. UNICAP-M [Concomitant]
  5. TRIAMTERENE AND HYDROCHLOROTHIAZIDE [Concomitant]
  6. DIGOXIN [Concomitant]
  7. TYLENOL-500 [Concomitant]
  8. COLCHICINE [Concomitant]
     Indication: CORONARY ARTERY DISEASE

REACTIONS (5)
  - ABDOMINAL DISCOMFORT [None]
  - BLOOD PRESSURE DECREASED [None]
  - DEATH [None]
  - FATIGUE [None]
  - MALAISE [None]
